FAERS Safety Report 8367147-9 (Version None)
Quarter: 2012Q2

REPORT INFORMATION
  Report Type: 
  Country: None (occurrence: None)
  Receive Date: 20120517
  Receipt Date: 20120503
  Transmission Date: 20120825
  Serious: Yes (Death)
  Sender: FDA-Public Use
  Company Number: PT-CELGENEUS-008-50794-12050485

PATIENT

DRUGS (1)
  1. VIDAZA [Suspect]
     Indication: CHRONIC MYELOMONOCYTIC LEUKAEMIA
     Route: 041

REACTIONS (3)
  - DEMENTIA [None]
  - PNEUMONIA [None]
  - CHRONIC MYELOMONOCYTIC LEUKAEMIA [None]
